FAERS Safety Report 7425049-6 (Version None)
Quarter: 2011Q2

REPORT INFORMATION
  Report Type: 
  Country: None (occurrence: None)
  Receive Date: 20110420
  Receipt Date: 20110411
  Transmission Date: 20111010
  Serious: Yes (Other)
  Sender: FDA-Public Use
  Company Number: AR-AMGEN-ARGSP2011015027

PATIENT
  Sex: Male

DRUGS (2)
  1. ALENDRONATE SODIUM [Suspect]
     Dosage: UNK
  2. ENBREL [Suspect]
     Indication: PRODUCT USED FOR UNKNOWN INDICATION
     Dosage: UNK

REACTIONS (8)
  - CONDITION AGGRAVATED [None]
  - BLISTER [None]
  - PRURITUS GENERALISED [None]
  - HYPERSENSITIVITY [None]
  - SKIN DISORDER [None]
  - DRY SKIN [None]
  - RASH GENERALISED [None]
  - BURNING SENSATION [None]
